FAERS Safety Report 13781619 (Version 2)
Quarter: 2017Q3

REPORT INFORMATION
  Report Type: Spontaneous
  Country: JP (occurrence: JP)
  Receive Date: 20170724
  Receipt Date: 20170928
  Transmission Date: 20171127
  Serious: Yes (Death, Other)
  Sender: FDA-Public Use
  Company Number: JP-BEH-2016073355

PATIENT
  Age: 69 Year
  Sex: Female
  Weight: 63.6 kg

DRUGS (2)
  1. ALBUMINAR-25 [Suspect]
     Active Substance: ALBUMIN HUMAN
     Indication: ASCITES
     Dosage: 2 IU (100ML), QD
     Route: 042
     Dates: start: 20160830, end: 20160903
  2. ALBUMINAR-25 [Suspect]
     Active Substance: ALBUMIN HUMAN
     Indication: HYPOALBUMINAEMIA

REACTIONS (4)
  - Hepatic function abnormal [Fatal]
  - Puncture site erythema [Recovered/Resolved]
  - Hepatic failure [Fatal]
  - Drug effect incomplete [Unknown]

NARRATIVE: CASE EVENT DATE: 20160901
